FAERS Safety Report 5683461-X (Version None)
Quarter: 2008Q1

REPORT INFORMATION
  Report Type: 
  Country: None (occurrence: None)
  Receive Date: 20080326
  Receipt Date: 20080312
  Transmission Date: 20080703
  Serious: Yes (Life-Threatening, Hospitalization)
  Sender: FDA-Public Use
  Company Number: MEDI-0006613

PATIENT
  Age: 5 Month
  Sex: Female
  Weight: 3.8 kg

DRUGS (3)
  1. SYNAGIS [Suspect]
     Indication: ANTIVIRAL PROPHYLAXIS
     Dosage: 60 MG, INTRAMUSCULAR
     Route: 030
     Dates: start: 20080205, end: 20080205
  2. ALFACALCIDOL (ALFACALCIDOL) [Concomitant]
  3. FERRIC PYROPHOSPHATE (FERRIC PYROPHOSPHATE) [Concomitant]

REACTIONS (9)
  - APNOEA [None]
  - ASPARTATE AMINOTRANSFERASE INCREASED [None]
  - BLOOD ALKALINE PHOSPHATASE INCREASED [None]
  - BLOOD CREATINE DECREASED [None]
  - BLOOD GLUCOSE INCREASED [None]
  - BLOOD LACTATE DEHYDROGENASE INCREASED [None]
  - BLOOD UREA DECREASED [None]
  - HEART RATE INCREASED [None]
  - PROTEIN TOTAL DECREASED [None]
